FAERS Safety Report 13666455 (Version 1)
Quarter: 2017Q2

REPORT INFORMATION
  Report Type: Spontaneous
  Country: US (occurrence: US)
  Receive Date: 20170619
  Receipt Date: 20170619
  Transmission Date: 20170830
  Serious: Yes (Disabling)
  Sender: FDA-Public Use
  Company Number: US-ROCHE-1334345

PATIENT
  Age: 46 Year
  Sex: Female
  Weight: 72.64 kg

DRUGS (6)
  1. FLAXSEED [Concomitant]
     Active Substance: FLAX SEED
     Route: 048
  2. XELODA [Suspect]
     Active Substance: CAPECITABINE
     Indication: METASTASES TO THE RESPIRATORY SYSTEM
  3. HEPARIN [Concomitant]
     Active Substance: HEPARIN SODIUM
  4. XELODA [Suspect]
     Active Substance: CAPECITABINE
     Indication: GASTROINTESTINAL CARCINOMA
  5. XELODA [Suspect]
     Active Substance: CAPECITABINE
     Indication: BREAST CANCER
     Dosage: BID 14 DAYS ON 7 DAYS OFF
     Route: 048
  6. ATIVAN [Concomitant]
     Active Substance: LORAZEPAM
     Route: 048

REACTIONS (3)
  - Palmar-plantar erythrodysaesthesia syndrome [Not Recovered/Not Resolved]
  - Erythema [Not Recovered/Not Resolved]
  - Fatigue [Not Recovered/Not Resolved]

NARRATIVE: CASE EVENT DATE: 20131108
